FAERS Safety Report 12226168 (Version 2)
Quarter: 2016Q2

REPORT INFORMATION
  Report Type: Spontaneous
  Country: FR (occurrence: FR)
  Receive Date: 20160331
  Receipt Date: 20160421
  Transmission Date: 20160815
  Serious: Yes (Death, Congenital Anomaly, Other)
  Sender: FDA-Public Use
  Company Number: FR-BRISTOL-MYERS SQUIBB COMPANY-BMS-2016-020932

PATIENT
  Age: 0 Day
  Sex: Female
  Weight: 2.94 kg

DRUGS (2)
  1. HYDREA [Suspect]
     Active Substance: HYDROXYUREA
     Indication: PRODUCT USED FOR UNKNOWN INDICATION
     Dosage: 500 MG, QD
     Route: 064
     Dates: start: 20150212, end: 20151029
  2. SPECIAFOLDINE [Concomitant]
     Active Substance: FOLIC ACID
     Indication: PRODUCT USED FOR UNKNOWN INDICATION
     Dosage: UNK
     Route: 064
     Dates: start: 20151029

REACTIONS (4)
  - Respiratory tract malformation [Recovered/Resolved]
  - Laryngeal operation [Unknown]
  - Foetal exposure during pregnancy [Unknown]
  - Laryngeal stenosis [Fatal]

NARRATIVE: CASE EVENT DATE: 20151029
